FAERS Safety Report 7671134-3 (Version None)
Quarter: 2011Q3

REPORT INFORMATION
  Report Type: 
  Country: None (occurrence: None)
  Receive Date: 20110711
  Receipt Date: 20110413
  Transmission Date: 20111222
  Serious: Yes (Other)
  Sender: FDA-Public Use
  Company Number: IPC201104-000667

PATIENT
  Sex: Female

DRUGS (3)
  1. REGLAN [Suspect]
     Dates: start: 20010201, end: 20100201
  2. METOCLOPRAMIDE [Suspect]
     Dosage: ORAL
     Route: 048
     Dates: start: 20010201, end: 20100201
  3. METOCLOPRAMIDE HCL [Suspect]
     Dosage: ORAL
     Route: 048
     Dates: start: 20010201, end: 20100201

REACTIONS (1)
  - TARDIVE DYSKINESIA [None]
